FAERS Safety Report 10948077 (Version 1)
Quarter: 2015Q1

REPORT INFORMATION
  Report Type: Spontaneous
  Country: US (occurrence: None)
  Receive Date: 20150320
  Receipt Date: 20150320
  Transmission Date: 20150721
  Serious: No
  Sender: FDA-Public Use
  Company Number: 15AE014

PATIENT
  Sex: Female

DRUGS (1)
  1. EQUATE SLEEP AID [Suspect]
     Active Substance: DOXYLAMINE SUCCINATE
     Indication: SLEEP DISORDER
     Dosage: 1 TABLET AT NIGHT?

REACTIONS (1)
  - Insomnia [None]

NARRATIVE: CASE EVENT DATE: 20150316
